FAERS Safety Report 9391803 (Version 2)
Quarter: 2013Q3

REPORT INFORMATION
  Report Type: Spontaneous
  Country: US (occurrence: US)
  Receive Date: 20130709
  Receipt Date: 20130930
  Transmission Date: 20140515
  Serious: Yes (Hospitalization)
  Sender: FDA-Public Use
  Company Number: US-BAYER-2013-080622

PATIENT
  Age: 19 Year
  Sex: Female

DRUGS (3)
  1. MIRENA [Suspect]
     Indication: CONTRACEPTION
     Dosage: 20 MCG/24HR, CONT
     Route: 015
     Dates: start: 20090831, end: 20130306
  2. MIRENA [Suspect]
     Indication: CONTRACEPTION
     Dosage: 20 MCG/24HR, CONT
     Route: 015
     Dates: start: 20130606, end: 20130713
  3. NUVARING [Concomitant]
     Dosage: UNK
     Dates: start: 2013

REACTIONS (20)
  - Pyelonephritis [Recovering/Resolving]
  - Pyrexia [Recovering/Resolving]
  - Nausea [Recovering/Resolving]
  - Vomiting [Recovering/Resolving]
  - Diarrhoea [Recovering/Resolving]
  - Abdominal pain lower [Recovering/Resolving]
  - Haematuria [Recovering/Resolving]
  - White blood cells urine positive [Recovering/Resolving]
  - Escherichia test positive [Recovering/Resolving]
  - Abdominal pain [Recovering/Resolving]
  - Pelvic pain [None]
  - Procedural pain [Not Recovered/Not Resolved]
  - Abdominal distension [Not Recovered/Not Resolved]
  - Pyrexia [Recovered/Resolved]
  - Chills [Not Recovered/Not Resolved]
  - Dyspnoea [Not Recovered/Not Resolved]
  - Feeling of body temperature change [Not Recovered/Not Resolved]
  - Heart rate decreased [Not Recovered/Not Resolved]
  - Diarrhoea [None]
  - Gastrointestinal pain [None]
